FAERS Safety Report 19213132 (Version 40)
Quarter: 2025Q3

REPORT INFORMATION
  Report Type: Report from Study
  Country: CO (occurrence: CO)
  Receive Date: 20210504
  Receipt Date: 20250930
  Transmission Date: 20251021
  Serious: Yes (Life-Threatening)
  Sender: TAKEDA
  Company Number: CO-TAKEDA-CO202025698

PATIENT
  Age: 11 Year
  Sex: Female
  Weight: 41 kg

DRUGS (20)
  1. ICATIBANT [Suspect]
     Active Substance: ICATIBANT ACETATE
     Indication: Hereditary angioedema
  2. ICATIBANT [Suspect]
     Active Substance: ICATIBANT ACETATE
     Indication: Immune system disorder
  3. ICATIBANT [Suspect]
     Active Substance: ICATIBANT ACETATE
  4. ICATIBANT [Suspect]
     Active Substance: ICATIBANT ACETATE
  5. ICATIBANT [Suspect]
     Active Substance: ICATIBANT ACETATE
  6. ICATIBANT [Suspect]
     Active Substance: ICATIBANT ACETATE
     Dosage: 30 MILLIGRAM, TID
  7. ICATIBANT [Suspect]
     Active Substance: ICATIBANT ACETATE
  8. ICATIBANT [Suspect]
     Active Substance: ICATIBANT ACETATE
  9. ICATIBANT [Suspect]
     Active Substance: ICATIBANT ACETATE
  10. ICATIBANT [Suspect]
     Active Substance: ICATIBANT ACETATE
  11. ICATIBANT [Suspect]
     Active Substance: ICATIBANT ACETATE
  12. ICATIBANT [Suspect]
     Active Substance: ICATIBANT ACETATE
  13. TAKHZYRO [Suspect]
     Active Substance: LANADELUMAB-FLYO
     Indication: Hereditary angioedema
     Dosage: 300 MILLIGRAM, 2/MONTH
  14. TAKHZYRO [Suspect]
     Active Substance: LANADELUMAB-FLYO
     Dosage: 300 MILLIGRAM, Q2WEEKS
  15. TAKHZYRO [Suspect]
     Active Substance: LANADELUMAB-FLYO
     Dosage: 300 MILLIGRAM, 2/WEEK
  16. TAKHZYRO [Suspect]
     Active Substance: LANADELUMAB-FLYO
     Dosage: 300 MILLIGRAM, 2/MONTH
  17. TAKHZYRO [Suspect]
     Active Substance: LANADELUMAB-FLYO
     Dosage: 300 MILLIGRAM, 2/MONTH
     Dates: start: 20240906
  18. TAKHZYRO [Suspect]
     Active Substance: LANADELUMAB-FLYO
     Dosage: 300 MILLIGRAM, MONTHLY
  19. TAKHZYRO [Suspect]
     Active Substance: LANADELUMAB-FLYO
     Dosage: 300 MILLIGRAM, Q4WEEKS
  20. TAKHZYRO [Suspect]
     Active Substance: LANADELUMAB-FLYO
     Dosage: 300 MILLIGRAM, 2/MONTH

REACTIONS (19)
  - Suspected COVID-19 [Unknown]
  - Ligament sprain [Unknown]
  - Incorrect dose administered [Unknown]
  - Injection site reaction [Recovered/Resolved]
  - Weight increased [Unknown]
  - Body height increased [Unknown]
  - Weight decreased [Unknown]
  - Body height decreased [Unknown]
  - Arthropod bite [Recovered/Resolved]
  - Dysmenorrhoea [Recovering/Resolving]
  - Accident [Recovering/Resolving]
  - Treatment noncompliance [Unknown]
  - Product use issue [Unknown]
  - Product prescribing issue [Unknown]
  - Product dose omission issue [Unknown]
  - Product distribution issue [Unknown]
  - Rhinitis allergic [Unknown]
  - Hereditary angioedema [Recovered/Resolved]
  - Inappropriate schedule of product administration [Unknown]

NARRATIVE: CASE EVENT DATE: 20190216
